FAERS Safety Report 6240350-X (Version None)
Quarter: 2009Q2

REPORT INFORMATION
  Report Type: 
  Country: None (occurrence: None)
  Receive Date: 20090623
  Receipt Date: 20080814
  Transmission Date: 20091009
  Serious: No
  Sender: FDA-Public Use
  Company Number: US-ASTRAZENECA-2008UW16679

PATIENT
  Age: 66 Year
  Sex: Female
  Weight: 82 kg

DRUGS (10)
  1. PULMICORT-100 [Suspect]
     Indication: ASTHMA
     Route: 055
  2. PULMICORT-100 [Suspect]
     Route: 055
  3. GEMFIBROZIL [Concomitant]
  4. PAXIL [Concomitant]
  5. SYNTHROID [Concomitant]
  6. LISINOPRIL [Concomitant]
  7. LOVASTATIN [Concomitant]
  8. RANITIDINE [Concomitant]
  9. METFORMIN HCL [Concomitant]
  10. FORMOTEROL FUMARATE [Concomitant]

REACTIONS (3)
  - BLOOD GLUCOSE INCREASED [None]
  - FEELING JITTERY [None]
  - PALPITATIONS [None]
